FAERS Safety Report 22632045 (Version 2)
Quarter: 2023Q2

REPORT INFORMATION
  Report Type: Report from Study
  Country: ZA (occurrence: ZA)
  Receive Date: 20230623
  Receipt Date: 20230629
  Transmission Date: 20230722
  Serious: Yes (Other)
  Sender: FDA-Public Use
  Company Number: ZA-002147023-NVSC2023ZA137076

PATIENT
  Age: 69 Year
  Sex: Female

DRUGS (1)
  1. ERELZI [Suspect]
     Active Substance: ETANERCEPT-SZZS
     Indication: Product used for unknown indication
     Dosage: 50 MG, QW
     Route: 058
     Dates: start: 202303

REACTIONS (3)
  - Haemoglobin abnormal [Unknown]
  - C-reactive protein abnormal [Unknown]
  - Platelet count abnormal [Unknown]
